FAERS Safety Report 8483655-4 (Version None)
Quarter: 2012Q3

REPORT INFORMATION
  Report Type: 
  Country: None (occurrence: None)
  Receive Date: 20120702
  Receipt Date: 20120618
  Transmission Date: 20120928
  Serious: Yes (Death, Other)
  Sender: FDA-Public Use
  Company Number: IT-RANBAXY-2011R1-42996

PATIENT
  Age: 80 Year
  Sex: Female

DRUGS (1)
  1. MINOCYCLINE HYDROCHLORIDE [Suspect]
     Indication: DERMATITIS
     Dosage: 100 MG/DAY
     Route: 065
     Dates: start: 20050201, end: 20060301

REACTIONS (3)
  - DYSPHAGIA [None]
  - HEPATIC ENZYME INCREASED [None]
  - HEPATITIS ACUTE [None]
